FAERS Safety Report 4853853-7 (Version None)
Quarter: 2005Q4

REPORT INFORMATION
  Report Type: 
  Country: None (occurrence: None)
  Receive Date: 20051213
  Receipt Date: 20051128
  Transmission Date: 20060501
  Serious: No
  Sender: FDA-Public Use
  Company Number: US_0507119940

PATIENT
  Age: 49 Year
  Sex: Female
  Weight: 108.4 kg

DRUGS (8)
  1. OLANZAPINE [Suspect]
     Dosage: 10 MG EACH EVENING ORAL
     Route: 048
     Dates: start: 19970116, end: 19970121
  2. OLANZAPINE [Suspect]
     Dosage: 10 MG EACH EVENING ORAL
     Route: 048
     Dates: start: 19970121, end: 19970213
  3. OLANZAPINE [Suspect]
     Dosage: 10 MG EACH EVENING ORAL
     Route: 048
     Dates: start: 19990827, end: 20040616
  4. OLANZAPINE [Suspect]
     Dosage: 10 MG EACH EVENING ORAL
     Route: 048
     Dates: start: 19970213
  5. SEROQUEL [Concomitant]
  6. ABILIFY [Concomitant]
  7. VALIUM /NET/ (DIAZEPAM) [Concomitant]
  8. REDUX [Concomitant]

REACTIONS (2)
  - DIABETES MELLITUS [None]
  - METRORRHAGIA [None]
